FAERS Safety Report 23046560 (Version 3)
Quarter: 2023Q4

REPORT INFORMATION
  Report Type: Report from Study
  Country: US (occurrence: US)
  Receive Date: 20231009
  Receipt Date: 20231117
  Transmission Date: 20240110
  Serious: No
  Sender: FDA-Public Use
  Company Number: US-002147023-NVSC2023US214681

PATIENT
  Sex: Male
  Weight: 83.46 kg

DRUGS (1)
  1. ENTRESTO [Suspect]
     Active Substance: SACUBITRIL\VALSARTAN
     Indication: Arrhythmia
     Dosage: 1 DOSAGE FORM, BID
     Route: 048
     Dates: start: 202203

REACTIONS (3)
  - Swelling face [Unknown]
  - Dizziness exertional [Unknown]
  - Product use in unapproved indication [Unknown]
